FAERS Safety Report 14609578 (Version 3)
Quarter: 2018Q2

REPORT INFORMATION
  Report Type: Spontaneous
  Country: NL (occurrence: NL)
  Receive Date: 20180307
  Receipt Date: 20180618
  Transmission Date: 20180711
  Serious: Yes (Other)
  Sender: FDA-Public Use
  Company Number: PHHY2018NL030572

PATIENT
  Age: 43 Year
  Sex: Female

DRUGS (3)
  1. VITAMIN D [Concomitant]
     Active Substance: CHOLECALCIFEROL
     Indication: SUPPLEMENTATION THERAPY
     Dosage: UNK
     Route: 065
  2. IRON [Concomitant]
     Active Substance: IRON
     Indication: SUPPLEMENTATION THERAPY
     Dosage: UNK
     Route: 065
  3. FOLIC ACID. [Suspect]
     Active Substance: FOLIC ACID
     Indication: SUPPLEMENTATION THERAPY
     Dosage: UNK
     Route: 065

REACTIONS (14)
  - Disturbance in attention [Unknown]
  - Palpitations [Recovered/Resolved]
  - Neuropathy peripheral [Recovering/Resolving]
  - Visual impairment [Recovering/Resolving]
  - Irritability [Unknown]
  - Paraesthesia [Recovered/Resolved]
  - Mood swings [Unknown]
  - Abnormal behaviour [Recovered/Resolved]
  - Ataxia [Recovered/Resolved]
  - Asthenia [Recovered/Resolved]
  - Dizziness [Recovered/Resolved]
  - Tinnitus [Unknown]
  - Confusional state [Recovered/Resolved]
  - Aphasia [Unknown]
